FAERS Safety Report 16374708 (Version 1)
Quarter: 2019Q2

REPORT INFORMATION
  Report Type: Spontaneous
  Country: CN (occurrence: CN)
  Receive Date: 20190530
  Receipt Date: 20190530
  Transmission Date: 20190711
  Serious: Yes (Other)
  Sender: FDA-Public Use
  Company Number: CN-BAXTER-2019BAX010497

PATIENT
  Age: 49 Year
  Sex: Female
  Weight: 64 kg

DRUGS (12)
  1. 0.9% SODIUM CHLORIDE INJECTION [Suspect]
     Active Substance: SODIUM CHLORIDE
     Dosage: ENDOXAN + NS, 1ST CHEMOTHERAPY.
     Route: 042
  2. ENDOXAN [Suspect]
     Active Substance: CYCLOPHOSPHAMIDE
     Dosage: ENDOXAN + NS, DOSE RE-INTRODUCED.
     Route: 042
  3. ENDOXAN [Suspect]
     Active Substance: CYCLOPHOSPHAMIDE
     Dosage: ENDOXAN + NS, 1ST CHEMOTHERAPY.
     Route: 042
  4. 0.9% SODIUM CHLORIDE INJECTION [Suspect]
     Active Substance: SODIUM CHLORIDE
     Dosage: PHARMORUBICIN RD+ NS,  DOSE RE-INTRODUCED.
     Route: 041
  5. PHARMORUBICIN RD [Suspect]
     Active Substance: EPIRUBICIN
     Dosage: PHARMORUBICIN RD + NS, DOSE RE-INTRODUCED
     Route: 041
  6. 0.9% SODIUM CHLORIDE INJECTION [Suspect]
     Active Substance: SODIUM CHLORIDE
     Dosage: PHARMORUBICIN RD + NS, 2ND CHEMOTHERAPY
     Route: 041
     Dates: start: 20190402, end: 20190402
  7. 0.9% SODIUM CHLORIDE INJECTION [Suspect]
     Active Substance: SODIUM CHLORIDE
     Dosage: ENDOXAN + NS,  DOSE RE-INTRODUCED.
     Route: 042
  8. 0.9% SODIUM CHLORIDE INJECTION [Suspect]
     Active Substance: SODIUM CHLORIDE
     Dosage: PHARMORUBICIN RD+ NS, 1ST CHEMOTHERAPY.
     Route: 041
  9. PHARMORUBICIN RD [Suspect]
     Active Substance: EPIRUBICIN
     Indication: BREAST CANCER FEMALE
     Dosage: PHARMORUBICIN RD + NS, 2ND CHEMOTHERAPY
     Route: 041
     Dates: start: 20190402, end: 20190402
  10. ENDOXAN [Suspect]
     Active Substance: CYCLOPHOSPHAMIDE
     Indication: BREAST CANCER FEMALE
     Dosage: ENDOXAN + NS, 2ND CHEMOTHERAPY
     Route: 042
     Dates: start: 20190402, end: 20190402
  11. 0.9% SODIUM CHLORIDE INJECTION [Suspect]
     Active Substance: SODIUM CHLORIDE
     Indication: MEDICATION DILUTION
     Dosage: ENDOXAN + NS, 2ND CHEMOTHERAPY
     Route: 042
     Dates: start: 20190402, end: 20190402
  12. PHARMORUBICIN RD [Suspect]
     Active Substance: EPIRUBICIN
     Dosage: PHARMORUBICIN RD + NS, FIRST CHEMOTHERAPY
     Route: 041

REACTIONS (2)
  - Agranulocytosis [Recovered/Resolved]
  - Leukopenia [Recovered/Resolved]

NARRATIVE: CASE EVENT DATE: 20190411
